FAERS Safety Report 15540409 (Version 1)
Quarter: 2018Q4

REPORT INFORMATION
  Report Type: Spontaneous
  Country: US (occurrence: US)
  Receive Date: 20181022
  Receipt Date: 20181022
  Transmission Date: 20190205
  Serious: Yes (Other)
  Sender: FDA-Public Use
  Company Number: None

PATIENT
  Age: 56 Year
  Sex: Female
  Weight: 93.15 kg

DRUGS (4)
  1. DULOXETINE HCI GENERIC FOR CYMBALTA [Suspect]
     Active Substance: DULOXETINE HYDROCHLORIDE
     Indication: PAIN
     Dosage: QUANTITY:1 CAPSULE(S);?
     Route: 048
  2. HYDROCODONE-ACETAMINOPHEN [Concomitant]
     Active Substance: ACETAMINOPHEN\HYDROCODONE
  3. TYLENOL [Concomitant]
     Active Substance: ACETAMINOPHEN
  4. DULOXETINE HCI GENERIC FOR CYMBALTA [Suspect]
     Active Substance: DULOXETINE HYDROCHLORIDE
     Indication: BIPOLAR I DISORDER
     Dosage: QUANTITY:1 CAPSULE(S);?
     Route: 048

REACTIONS (1)
  - Cataract subcapsular [None]

NARRATIVE: CASE EVENT DATE: 20181019
